FAERS Safety Report 9201263 (Version 1)
Quarter: 2013Q2

REPORT INFORMATION
  Report Type: Spontaneous
  Country: BR (occurrence: BR)
  Receive Date: 20130401
  Receipt Date: 20130401
  Transmission Date: 20140414
  Serious: Yes (Other)
  Sender: FDA-Public Use
  Company Number: PHHY2013BR030975

PATIENT
  Age: 66 Year
  Sex: Female

DRUGS (3)
  1. DIOVAN HCT [Suspect]
     Indication: HYPERTENSION
     Dosage: 160/25  MG, UNK
  2. DIOVAN [Suspect]
     Dosage: 1 DF, 1 TABLET 160/60 + 25 MG , DAILY
  3. SELOZOK [Concomitant]
     Indication: ARRHYTHMIA
     Dosage: 50 MG, QD

REACTIONS (6)
  - Fall [Not Recovered/Not Resolved]
  - Hand fracture [Not Recovered/Not Resolved]
  - Blood pressure decreased [Not Recovered/Not Resolved]
  - Blood pressure fluctuation [Not Recovered/Not Resolved]
  - Feeling cold [Not Recovered/Not Resolved]
  - Hyperhidrosis [Not Recovered/Not Resolved]
